FAERS Safety Report 20471616 (Version 2)
Quarter: 2022Q4

REPORT INFORMATION
  Report Type: Spontaneous
  Country: US (occurrence: US)
  Receive Date: 20220214
  Receipt Date: 20221212
  Transmission Date: 20230112
  Serious: No
  Sender: FDA-Public Use
  Company Number: US-SA-SAC20220211000928

PATIENT
  Age: 9 Year
  Sex: Male

DRUGS (6)
  1. ELOCTATE [Suspect]
     Active Substance: EFMOROCTOCOG ALFA
     Indication: Factor VIII deficiency
     Dosage: 2500 IU, BIW (TWICE PER WEEK AND AS NEEDED)
     Route: 042
     Dates: start: 201603
  2. ELOCTATE [Suspect]
     Active Substance: EFMOROCTOCOG ALFA
     Indication: Factor VIII deficiency
     Dosage: 2500 IU, BIW (TWICE PER WEEK AND AS NEEDED)
     Route: 042
     Dates: start: 201603
  3. ELOCTATE [Suspect]
     Active Substance: EFMOROCTOCOG ALFA
     Dosage: 245 IU, BIW (TWICE PER WEEK AND AS NEEDED)
     Route: 042
     Dates: start: 202006
  4. ELOCTATE [Suspect]
     Active Substance: EFMOROCTOCOG ALFA
     Dosage: 245 IU, BIW (TWICE PER WEEK AND AS NEEDED)
     Route: 042
     Dates: start: 202006
  5. ELOCTATE [Suspect]
     Active Substance: EFMOROCTOCOG ALFA
     Dosage: 2159 IU, BIW (TWICE WEEKLY + PRN)
     Route: 042
     Dates: start: 202006
  6. ELOCTATE [Suspect]
     Active Substance: EFMOROCTOCOG ALFA
     Dosage: 2159 IU, BIW (TWICE WEEKLY + PRN)
     Route: 042
     Dates: start: 202006

REACTIONS (3)
  - Ear infection [Unknown]
  - Fall [Unknown]
  - Traumatic haemorrhage [Recovered/Resolved]

NARRATIVE: CASE EVENT DATE: 20220204
